FAERS Safety Report 18815642 (Version 1)
Quarter: 2021Q1

REPORT INFORMATION
  Report Type: Spontaneous
  Country: US (occurrence: US)
  Receive Date: 20210131
  Receipt Date: 20210131
  Transmission Date: 20210419
  Serious: Yes (Other)
  Sender: FDA-Public Use
  Company Number: None

PATIENT
  Age: 33 Year
  Sex: Female
  Weight: 72.9 kg

DRUGS (9)
  1. ELURYNG [Suspect]
     Active Substance: ETHINYL ESTRADIOL\ETONOGESTREL
     Indication: CONTRACEPTION
     Dosage: ?          QUANTITY:1 RING;OTHER FREQUENCY:EVERY 4 WEEKS;?
     Route: 067
     Dates: start: 20201220, end: 20210129
  2. KETOCONAZOLE. [Concomitant]
     Active Substance: KETOCONAZOLE
  3. TRIAMCINOLONE [Concomitant]
     Active Substance: TRIAMCINOLONE
  4. NAPROXEN. [Concomitant]
     Active Substance: NAPROXEN
  5. ELIQUIS [Concomitant]
     Active Substance: APIXABAN
  6. VTE TREATMENT [Concomitant]
  7. ACETAMINOPHEN. [Concomitant]
     Active Substance: ACETAMINOPHEN
  8. CYCLOBENZAPRINE. [Concomitant]
     Active Substance: CYCLOBENZAPRINE
  9. MACROBID [Concomitant]
     Active Substance: NITROFURANTOIN\NITROFURANTOIN MONOHYDRATE

REACTIONS (2)
  - Complication associated with device [None]
  - Thrombophlebitis superficial [None]

NARRATIVE: CASE EVENT DATE: 20210129
